FAERS Safety Report 6681432-8 (Version None)
Quarter: 2010Q2

REPORT INFORMATION
  Report Type: 
  Country: None (occurrence: None)
  Receive Date: 20100414
  Receipt Date: 20090417
  Transmission Date: 20101027
  Serious: No
  Sender: FDA-Public Use
  Company Number: US-ASTRAZENECA-2009UW10007

PATIENT
  Age: 89 Year
  Sex: Female

DRUGS (11)
  1. ZESTORETIC [Suspect]
     Route: 048
  2. AMARYL [Concomitant]
  3. AVANDAMET [Concomitant]
  4. ATENOL [Concomitant]
     Route: 048
  5. NEXIUM [Concomitant]
     Route: 048
  6. NORVASC [Concomitant]
  7. CLONIDINE [Concomitant]
  8. GLUCOTROL [Concomitant]
  9. DETROL [Concomitant]
  10. FIORINAL [Concomitant]
  11. LIQUID IRON [Concomitant]

REACTIONS (19)
  - ABNORMAL DREAMS [None]
  - ALOPECIA [None]
  - ASTHENIA [None]
  - BLOOD CHOLESTEROL INCREASED [None]
  - BLOOD POTASSIUM INCREASED [None]
  - CHOKING [None]
  - DECREASED APPETITE [None]
  - DIARRHOEA [None]
  - DIZZINESS [None]
  - DYSPHAGIA [None]
  - FALL [None]
  - FATIGUE [None]
  - HALLUCINATION [None]
  - HEADACHE [None]
  - HYPOAESTHESIA [None]
  - PARAESTHESIA [None]
  - PLATELET COUNT DECREASED [None]
  - PRURITUS [None]
  - RASH [None]
